FAERS Safety Report 8651178 (Version 2)
Quarter: 2013Q4

REPORT INFORMATION
  Report Type: Spontaneous
  Country: GB (occurrence: GB)
  Receive Date: 20120705
  Receipt Date: 20131127
  Transmission Date: 20140711
  Serious: Yes (Death, Hospitalization, Other)
  Sender: FDA-Public Use
  Company Number: GB-PFIZER INC-2012157807

PATIENT
  Age: 59 Year
  Sex: Male
  Weight: 95 kg

DRUGS (12)
  1. DOXAZOSIN MESILATE [Suspect]
     Indication: PRODUCT USED FOR UNKNOWN INDICATION
     Dosage: UNK
     Route: 065
  2. AVANDIA [Suspect]
     Indication: TYPE 2 DIABETES MELLITUS
     Dosage: 4 MG, 1X/DAY
     Route: 065
     Dates: start: 200708
  3. AVANDIA [Suspect]
     Dosage: 8 MG, 1X/DAY
     Dates: start: 200804
  4. EXENATIDE [Suspect]
     Indication: PRODUCT USED FOR UNKNOWN INDICATION
     Dosage: UNK
     Route: 065
  5. METFORMIN [Concomitant]
     Indication: TYPE 2 DIABETES MELLITUS
     Dosage: UNK
     Dates: start: 199609
  6. CIPROFIBRATE [Concomitant]
     Dosage: UNK
  7. PRAVASTATIN [Concomitant]
     Dosage: UNK
  8. ENALAPRIL [Concomitant]
     Dosage: UNK
  9. GLICLAZIDE [Concomitant]
     Dosage: UNK
  10. CO-CODAMOL [Concomitant]
     Dosage: UNK
  11. AMLODIPINE [Concomitant]
     Dosage: UNK
  12. ASPIRIN [Concomitant]
     Dosage: UNK

REACTIONS (40)
  - Cardiopulmonary failure [Fatal]
  - Bronchopneumonia [Fatal]
  - Pulmonary oedema [Unknown]
  - Obstructive airways disorder [Unknown]
  - Diabetic microangiopathy [Unknown]
  - Hypoxia [Unknown]
  - Renal failure [Unknown]
  - Diabetic eye disease [Unknown]
  - Diabetic retinopathy [Unknown]
  - Liver function test abnormal [Unknown]
  - Macular oedema [Unknown]
  - Cardiac failure congestive [Unknown]
  - Cardiac disorder [Unknown]
  - Dyslipidaemia [Unknown]
  - Pulmonary function test decreased [Unknown]
  - Chronic obstructive pulmonary disease [Unknown]
  - Oedema [Unknown]
  - Abdominal distension [Unknown]
  - Penile swelling [Unknown]
  - Blood glucose fluctuation [Unknown]
  - Renal impairment [Unknown]
  - Cough [Unknown]
  - Malaise [Unknown]
  - Nausea [Unknown]
  - Microalbuminuria [Unknown]
  - Scrotal swelling [Unknown]
  - Neovascularisation [Unknown]
  - Lower respiratory tract infection [Unknown]
  - Micturition disorder [Unknown]
  - Cardiomegaly [Unknown]
  - Nephrotic syndrome [Unknown]
  - Dyspnoea [Unknown]
  - Hypertension [Unknown]
  - Dilatation ventricular [Unknown]
  - Left ventricular hypertrophy [Unknown]
  - Systolic dysfunction [Unknown]
  - Dizziness [Unknown]
  - Vomiting [Unknown]
  - Oedema peripheral [Unknown]
  - Fluid overload [Unknown]
